FAERS Safety Report 9851670 (Version 1)
Quarter: 2014Q1

REPORT INFORMATION
  Report Type: Report from Study
  Country: PE (occurrence: PE)
  Receive Date: 20140129
  Receipt Date: 20140129
  Transmission Date: 20141002
  Serious: Yes (Other)
  Sender: FDA-Public Use
  Company Number: PE-ROCHE-1338501

PATIENT
  Age: 60 Year
  Sex: Female

DRUGS (1)
  1. ACTEMRA [Suspect]
     Indication: RHEUMATOID ARTHRITIS
     Dosage: LAST DOSE RECEIVED WAS ON 16.10.2013
     Route: 042
     Dates: start: 20100114, end: 201311

REACTIONS (3)
  - Peau d^orange [Recovering/Resolving]
  - Urticaria [Recovering/Resolving]
  - Oedema mouth [Recovering/Resolving]
